FAERS Safety Report 9382659 (Version 3)
Quarter: 2013Q4

REPORT INFORMATION
  Report Type: Spontaneous
  Country: BR (occurrence: BR)
  Receive Date: 20130703
  Receipt Date: 20131021
  Transmission Date: 20140711
  Serious: Yes (Hospitalization)
  Sender: FDA-Public Use
  Company Number: BR-GLAXOSMITHKLINE-A1029893A

PATIENT
  Age: 85 Year
  Sex: Female
  Weight: 80 kg

DRUGS (1)
  1. ZINNAT [Suspect]
     Indication: URINARY TRACT INFECTION
     Route: 050

REACTIONS (2)
  - Acute respiratory failure [Recovered/Resolved]
  - Product quality issue [Unknown]
